FAERS Safety Report 13363348 (Version 2)
Quarter: 2017Q2

REPORT INFORMATION
  Report Type: Spontaneous
  Country: FR (occurrence: FR)
  Receive Date: 20170323
  Receipt Date: 20170515
  Transmission Date: 20170830
  Serious: Yes (Disabling)
  Sender: FDA-Public Use
  Company Number: FR-TAKEDA-2017TUS006080

PATIENT
  Age: 64 Year
  Sex: Male
  Weight: 101 kg

DRUGS (3)
  1. ADENURIC [Suspect]
     Active Substance: FEBUXOSTAT
     Indication: GOUT
     Dosage: 80 MG, QD
     Route: 048
     Dates: start: 201505, end: 20170115
  2. PERMIXON [Concomitant]
     Active Substance: HERBALS\SAW PALMETTO
     Indication: BENIGN PROSTATIC HYPERPLASIA
     Dosage: 320 MG, QD
     Route: 048
     Dates: start: 200807
  3. HYDROCHLOROTHIAZIDE W/OLMESARTAN [Concomitant]
     Active Substance: HYDROCHLOROTHIAZIDE\OLMESARTAN MEDOXOMIL
     Indication: HYPERTENSION
     Dosage: 20 MG/25 MG, QD
     Route: 048
     Dates: start: 20080722

REACTIONS (4)
  - Visual impairment [Recovered/Resolved]
  - Balance disorder [Recovered/Resolved]
  - Tinnitus [Recovered/Resolved]
  - Cognitive disorder [Recovered/Resolved]

NARRATIVE: CASE EVENT DATE: 201505
